FAERS Safety Report 12677297 (Version 3)
Quarter: 2016Q4

REPORT INFORMATION
  Report Type: Spontaneous
  Country: ES (occurrence: ES)
  Receive Date: 20160823
  Receipt Date: 20161213
  Transmission Date: 20170207
  Serious: Yes (Hospitalization, Other)
  Sender: FDA-Public Use
  Company Number: ES-CELGENEUS-ESP-2015084458

PATIENT
  Age: 76 Year
  Sex: Female
  Weight: 73 kg

DRUGS (22)
  1. ABRAXANE [Suspect]
     Active Substance: PACLITAXEL
     Dosage: 125
     Route: 041
     Dates: start: 20150821, end: 20150821
  2. DEMCIZUMAB [Suspect]
     Active Substance: DEMCIZUMAB
     Route: 065
     Dates: start: 20150821, end: 20150821
  3. ABRAXANE [Suspect]
     Active Substance: PACLITAXEL
     Dosage: 125
     Route: 041
     Dates: start: 20150731, end: 20150731
  4. DEMCIZUMAB [Suspect]
     Active Substance: DEMCIZUMAB
     Route: 065
     Dates: start: 20160108
  5. ABRAXANE [Suspect]
     Active Substance: PACLITAXEL
     Dosage: 100
     Route: 041
     Dates: start: 20151113, end: 20160318
  6. ABRAXANE [Suspect]
     Active Substance: PACLITAXEL
     Dosage: 125
     Route: 041
     Dates: start: 20151002
  7. VITAMIN B12 [Concomitant]
     Active Substance: CYANOCOBALAMIN
     Indication: BACK PAIN
     Route: 065
     Dates: start: 20160711, end: 20160711
  8. RBC [Concomitant]
     Active Substance: HUMAN RED BLOOD CELL
     Indication: BACK PAIN
     Route: 065
     Dates: start: 20160711, end: 20160711
  9. GEMCITABINE [Suspect]
     Active Substance: GEMCITABINE\GEMCITABINE HYDROCHLORIDE
     Indication: PANCREATIC CARCINOMA METASTATIC
     Dosage: 1000
     Route: 065
     Dates: start: 20150724, end: 20150724
  10. DEMCIZUMAB [Suspect]
     Active Substance: DEMCIZUMAB
     Route: 065
     Dates: start: 20150807, end: 20150807
  11. DEMCIZUMAB [Suspect]
     Active Substance: DEMCIZUMAB
     Route: 065
     Dates: start: 20151002
  12. GEMCITABINE [Suspect]
     Active Substance: GEMCITABINE\GEMCITABINE HYDROCHLORIDE
     Dosage: 1000
     Route: 065
     Dates: start: 20150821, end: 20150821
  13. GEMCITABINE [Suspect]
     Active Substance: GEMCITABINE\GEMCITABINE HYDROCHLORIDE
     Dosage: 1000
     Route: 065
     Dates: start: 20160603, end: 20160610
  14. ABRAXANE [Suspect]
     Active Substance: PACLITAXEL
     Dosage: 125
     Route: 041
     Dates: start: 20160603, end: 20160610
  15. GEMCITABINE [Suspect]
     Active Substance: GEMCITABINE\GEMCITABINE HYDROCHLORIDE
     Dosage: 1000
     Route: 065
     Dates: start: 20150731, end: 20150731
  16. GEMCITABINE [Suspect]
     Active Substance: GEMCITABINE\GEMCITABINE HYDROCHLORIDE
     Dosage: 800 MG
     Route: 065
     Dates: start: 20151113, end: 20160415
  17. DEMCIZUMAB [Suspect]
     Active Substance: DEMCIZUMAB
     Indication: PANCREATIC CARCINOMA METASTATIC
     Route: 065
     Dates: start: 20150724, end: 20150724
  18. CELESTONE [Concomitant]
     Active Substance: BETAMETHASONE
     Indication: BACK PAIN
     Route: 065
     Dates: start: 20160613, end: 20160613
  19. CARVEDILOL. [Concomitant]
     Active Substance: CARVEDILOL
     Indication: BACK PAIN
     Route: 065
     Dates: start: 20160711, end: 20160721
  20. ABRAXANE [Suspect]
     Active Substance: PACLITAXEL
     Indication: PANCREATIC CARCINOMA METASTATIC
     Dosage: 125
     Route: 041
     Dates: start: 20150724, end: 20150724
  21. ABRAXANE [Suspect]
     Active Substance: PACLITAXEL
     Dosage: 125
     Route: 041
     Dates: start: 20150807, end: 20150807
  22. GEMCITABINE [Suspect]
     Active Substance: GEMCITABINE\GEMCITABINE HYDROCHLORIDE
     Dosage: 1000
     Route: 065
     Dates: start: 20150807, end: 20150807

REACTIONS (3)
  - Iron deficiency anaemia [Recovered/Resolved]
  - Stomatitis [Recovered/Resolved]
  - Diarrhoea [Recovered/Resolved]

NARRATIVE: CASE EVENT DATE: 20150730
